FAERS Safety Report 10178719 (Version 2)
Quarter: 2014Q2

REPORT INFORMATION
  Report Type: Report from Study
  Country: AU (occurrence: AU)
  Receive Date: 20140519
  Receipt Date: 20140519
  Transmission Date: 20141212
  Serious: Yes (Hospitalization)
  Sender: FDA-Public Use
  Company Number: AU-BIOGENIDEC-2013BI123125

PATIENT
  Age: 62 Year
  Sex: Female

DRUGS (2)
  1. AVONEX [Suspect]
     Indication: MULTIPLE SCLEROSIS
     Route: 030
     Dates: start: 201112, end: 201402
  2. FAMPYRA [Concomitant]
     Dates: end: 201304

REACTIONS (11)
  - Pyelonephritis [Recovered/Resolved]
  - Tubulointerstitial nephritis [Unknown]
  - Escherichia infection [Unknown]
  - Abasia [Unknown]
  - Musculoskeletal disorder [Unknown]
  - Multiple sclerosis [Recovered/Resolved]
  - Influenza like illness [Unknown]
  - Pyrexia [Unknown]
  - Chills [Recovered/Resolved]
  - Pain [Recovered/Resolved]
  - Fatigue [Recovered/Resolved]
